FAERS Safety Report 16026063 (Version 1)
Quarter: 2019Q1

REPORT INFORMATION
  Report Type: Spontaneous
  Country: US (occurrence: US)
  Receive Date: 20190302
  Receipt Date: 20190302
  Transmission Date: 20190418
  Serious: Yes (Other)
  Sender: FDA-Public Use
  Company Number: US-TEVA-2019-US-1019353

PATIENT
  Sex: Male

DRUGS (1)
  1. PROAIR HFA [Suspect]
     Active Substance: ALBUTEROL SULFATE
     Route: 065
     Dates: start: 20160618, end: 20160618

REACTIONS (3)
  - Dyspnoea [Recovered/Resolved]
  - Product dispensing error [Unknown]
  - Apparent death [Unknown]

NARRATIVE: CASE EVENT DATE: 20160618
